FAERS Safety Report 6344241-5 (Version None)
Quarter: 2009Q3

REPORT INFORMATION
  Report Type: 
  Country: None (occurrence: None)
  Receive Date: 20090903
  Receipt Date: 20090903
  Transmission Date: 20100115
  Serious: Yes (Other)
  Sender: FDA-Public Use
  Company Number: None

PATIENT
  Age: 46 Year
  Sex: Male
  Weight: 79.3795 kg

DRUGS (3)
  1. LEVAQUIN [Suspect]
     Indication: SINUSITIS
     Dosage: DOSE PACK DAILY/COMPLETED PO
     Route: 048
     Dates: start: 20081211, end: 20081217
  2. NORCO [Concomitant]
  3. SOMA [Concomitant]

REACTIONS (3)
  - ACTIVITIES OF DAILY LIVING IMPAIRED [None]
  - JOB DISSATISFACTION [None]
  - MUSCULOSKELETAL PAIN [None]
